FAERS Safety Report 14573169 (Version 2)
Quarter: 2018Q3

REPORT INFORMATION
  Report Type: Spontaneous
  Country: US (occurrence: US)
  Receive Date: 20180226
  Receipt Date: 20180824
  Transmission Date: 20181010
  Serious: Yes (Hospitalization, Other)
  Sender: FDA-Public Use
  Company Number: US-009507513-1802USA011352

PATIENT
  Sex: Female
  Weight: 79.37 kg

DRUGS (2)
  1. NUVARING [Suspect]
     Active Substance: ETHINYL ESTRADIOL\ETONOGESTREL
     Indication: CONTRACEPTION
     Dosage: 0.12?0.015 MG/24HR, 1 RING, Q MONTH, 3 WEEKS IN, 4TH WEEK OUT
     Route: 067
     Dates: start: 201601, end: 20160314
  2. NUVARING [Suspect]
     Active Substance: ETHINYL ESTRADIOL\ETONOGESTREL
     Indication: MENSTRUATION IRREGULAR

REACTIONS (8)
  - Transaminases abnormal [Unknown]
  - Pancreatic disorder [Unknown]
  - Constipation [Recovered/Resolved]
  - Thyroid mass [Unknown]
  - Leukocytosis [Unknown]
  - Swelling [Unknown]
  - Off label use [Unknown]
  - Pulmonary embolism [Recovering/Resolving]

NARRATIVE: CASE EVENT DATE: 2016
